FAERS Safety Report 7229632-2 (Version None)
Quarter: 2011Q1

REPORT INFORMATION
  Report Type: 
  Country: None (occurrence: None)
  Receive Date: 20110117
  Receipt Date: 20110104
  Transmission Date: 20110831
  Serious: Yes (Other)
  Sender: FDA-Public Use
  Company Number: PHHY2011US00941

PATIENT
  Sex: Male

DRUGS (3)
  1. CLOMID [Concomitant]
  2. VIAGRA [Suspect]
  3. FEMARA [Suspect]
     Dosage: 2.5 MG, QD
     Route: 048

REACTIONS (13)
  - CHEST PAIN [None]
  - LIBIDO DECREASED [None]
  - ERECTILE DYSFUNCTION [None]
  - COUGH [None]
  - NERVOUSNESS [None]
  - DYSPNOEA [None]
  - HYPERHIDROSIS [None]
  - DIZZINESS [None]
  - HOT FLUSH [None]
  - POLLAKIURIA [None]
  - CARDIAC DISORDER [None]
  - NIGHT SWEATS [None]
  - ANXIETY [None]
